FAERS Safety Report 4520387-9 (Version None)
Quarter: 2004Q4

REPORT INFORMATION
  Report Type: 
  Country: None (occurrence: None)
  Receive Date: 20041028
  Receipt Date: 20040706
  Transmission Date: 20050328
  Serious: Yes (Other)
  Sender: FDA-Public Use
  Company Number: HQWYE958408JUL04

PATIENT
  Age: 55 Year
  Sex: Female

DRUGS (2)
  1. PREMARIN [Suspect]
     Dates: start: 19840201, end: 19940701
  2. PROVERA [Suspect]
     Dates: start: 19840201, end: 19940701

REACTIONS (1)
  - BREAST CANCER [None]
